FAERS Safety Report 5370674-X (Version None)
Quarter: 2007Q2

REPORT INFORMATION
  Report Type: 
  Country: None (occurrence: None)
  Receive Date: 20070618
  Receipt Date: 20060922
  Transmission Date: 20071010
  Serious: Yes (Hospitalization)
  Sender: FDA-Public Use
  Company Number: PHEH2006US10037

PATIENT
  Age: 45 Year
  Sex: Male

DRUGS (1)
  1. GLEEVEC [Suspect]
     Indication: CHRONIC MYELOID LEUKAEMIA
     Dosage: 400 MG, QD, ORAL
     Route: 048
     Dates: start: 20060228, end: 20060804

REACTIONS (16)
  - ABDOMINAL DISTENSION [None]
  - ARTHRALGIA [None]
  - BLAST CRISIS IN MYELOGENOUS LEUKAEMIA [None]
  - CHILLS [None]
  - CONFUSIONAL STATE [None]
  - CONSTIPATION [None]
  - EYE DISORDER [None]
  - FATIGUE [None]
  - FLUID RETENTION [None]
  - JOINT SWELLING [None]
  - MYALGIA [None]
  - PARAESTHESIA [None]
  - PHOTOSENSITIVITY REACTION [None]
  - PYREXIA [None]
  - RASH [None]
  - WEIGHT INCREASED [None]
